FAERS Safety Report 5727583-3 (Version None)
Quarter: 2008Q2

REPORT INFORMATION
  Report Type: 
  Country: None (occurrence: None)
  Receive Date: 20080505
  Receipt Date: 20080428
  Transmission Date: 20081010
  Serious: Yes (Hospitalization)
  Sender: FDA-Public Use
  Company Number: US-ASTRAZENECA-2008UW08575

PATIENT
  Age: 83 Year
  Sex: Female
  Weight: 46.7 kg

DRUGS (6)
  1. CRESTOR [Suspect]
     Indication: BLOOD CHOLESTEROL
     Route: 048
     Dates: start: 20000101
  2. PLAVIX [Concomitant]
  3. SYNTHROID [Concomitant]
  4. OSCAL [Concomitant]
  5. METFORMIN HCL [Concomitant]
  6. STARLIX [Concomitant]

REACTIONS (2)
  - VASCULAR OPERATION [None]
  - WEIGHT DECREASED [None]
